FAERS Safety Report 11872428 (Version 2)
Quarter: 2016Q1

REPORT INFORMATION
  Report Type: Spontaneous
  Country: JP (occurrence: JP)
  Receive Date: 20151228
  Receipt Date: 20160112
  Transmission Date: 20160526
  Serious: Yes (Hospitalization)
  Sender: FDA-Public Use
  Company Number: JP-TAIHO ONCOLOGY INC-JPTT150545

PATIENT
  Age: 8 Decade
  Sex: Male

DRUGS (3)
  1. OXYCONTIN [Concomitant]
     Active Substance: OXYCODONE HYDROCHLORIDE
     Dosage: DETAILS NOT REPORTED, THE DOSE INCREASED SINCE 22/DEC/2015
     Route: 048
  2. LONSURF [Suspect]
     Active Substance: TIPIRACIL HYDROCHLORIDE\TRIFLURIDINE
     Indication: COLON CANCER METASTATIC
     Dosage: DOSE NOT REPORTED, CYCLE 1, ON DAYS 3-5 AND 8-12 (A 28-DAY CYCLE)
     Route: 048
     Dates: start: 20151225
  3. LONSURF [Suspect]
     Active Substance: TIPIRACIL HYDROCHLORIDE\TRIFLURIDINE
     Indication: COLON CANCER METASTATIC
     Dosage: DOSE NOT REPORTED, CYCLE 1, A TOTAL OF 3 DOSES (MORNING AND EVENING OF DAY 1, MORNING OF DAY 2)
     Route: 048
     Dates: start: 20151223, end: 20151224

REACTIONS (2)
  - Dizziness [Not Recovered/Not Resolved]
  - Angina pectoris [Recovered/Resolved]

NARRATIVE: CASE EVENT DATE: 20151224
